FAERS Safety Report 8104357-X (Version None)
Quarter: 2012Q1

REPORT INFORMATION
  Report Type: 
  Country: None (occurrence: None)
  Receive Date: 20120201
  Receipt Date: 20120127
  Transmission Date: 20120608
  Serious: Yes (Hospitalization)
  Sender: FDA-Public Use
  Company Number: US-PFIZER INC-2012023557

PATIENT
  Sex: Male
  Weight: 65.76 kg

DRUGS (1)
  1. BENEFIX [Suspect]
     Indication: FACTOR IX DEFICIENCY
     Dosage: 3500 IU, 2X/WEEK
     Route: 058

REACTIONS (1)
  - CARDIAC OPERATION [None]
